FAERS Safety Report 7182514-7 (Version None)
Quarter: 2010Q4

REPORT INFORMATION
  Report Type: 
  Country: None (occurrence: None)
  Receive Date: 20101221
  Receipt Date: 20101215
  Transmission Date: 20110411
  Serious: Yes (Life-Threatening, Hospitalization)
  Sender: FDA-Public Use
  Company Number: DE-BRISTOL-MYERS SQUIBB COMPANY-15237993

PATIENT
  Age: 61 Year
  Sex: Female
  Weight: 40 kg

DRUGS (6)
  1. CETUXIMAB [Suspect]
     Indication: HEAD AND NECK CANCER
     Dosage: DAY 1. 26MAY10/26MAY10, 250MG/M2, UNK/23JUN10. DISCONTINUED ON 07JUL10
     Route: 042
     Dates: start: 20100526, end: 20100623
  2. CISPLATIN [Suspect]
     Indication: HEAD AND NECK CANCER
     Dosage: DISCONTINUED ON 07JUL10
     Route: 042
     Dates: start: 20100526, end: 20100616
  3. PEMETREXED DISODIUM [Suspect]
     Indication: HEAD AND NECK CANCER
     Dosage: DISCONTINUED ON 07JUL10
     Route: 042
     Dates: start: 20100526, end: 20100616
  4. FOLIC ACID [Concomitant]
     Indication: PROPHYLAXIS
     Dates: start: 20100514, end: 20100707
  5. VITAMIN B-12 [Concomitant]
     Indication: PROPHYLAXIS
     Dates: start: 20100514, end: 20100707
  6. DEXAMETHASONE [Concomitant]
     Indication: PROPHYLAXIS

REACTIONS (4)
  - ENDOCARDITIS [None]
  - GENERAL PHYSICAL HEALTH DETERIORATION [None]
  - SEPTIC EMBOLUS [None]
  - STAPHYLOCOCCAL BACTERAEMIA [None]
